FAERS Safety Report 7655499-4 (Version None)
Quarter: 2011Q3

REPORT INFORMATION
  Report Type: 
  Country: None (occurrence: None)
  Receive Date: 20110804
  Receipt Date: 20110726
  Transmission Date: 20111222
  Serious: Yes (Other)
  Sender: FDA-Public Use
  Company Number: US-ABBOTT-11P-163-0841743-00

PATIENT
  Sex: Female
  Weight: 90.8 kg

DRUGS (9)
  1. HUMIRA [Suspect]
     Indication: CROHN'S DISEASE
     Dates: start: 20110501, end: 20110623
  2. ATIVAN [Concomitant]
     Indication: PRODUCT USED FOR UNKNOWN INDICATION
  3. ESTRADIOL [Concomitant]
     Indication: HORMONE REPLACEMENT THERAPY
  4. VITAMIN D [Concomitant]
     Indication: VITAMIN SUPPLEMENTATION
  5. CYMBALTA [Concomitant]
     Indication: FIBROMYALGIA
  6. EFFEXOR [Concomitant]
     Indication: DEPRESSION
  7. HYDROCODONE [Concomitant]
     Indication: PAIN
  8. HUMIRA [Suspect]
     Dates: start: 20110725
  9. AMBIEN [Concomitant]
     Indication: INSOMNIA

REACTIONS (8)
  - OSTEOCHONDRITIS [None]
  - CHILLS [None]
  - SENSORY DISTURBANCE [None]
  - DYSPNOEA [None]
  - CHEST PAIN [None]
  - HYPERHIDROSIS [None]
  - VOMITING [None]
  - HYPOPHAGIA [None]
